FAERS Safety Report 13847915 (Version 1)
Quarter: 2017Q3

REPORT INFORMATION
  Report Type: Spontaneous
  Country: US (occurrence: US)
  Receive Date: 20170809
  Receipt Date: 20170809
  Transmission Date: 20171127
  Serious: Yes (Other)
  Sender: FDA-Public Use
  Company Number: US-PURDUE PHARMA-USA-2017-0137752

PATIENT
  Sex: Male

DRUGS (1)
  1. BUTRANS [Suspect]
     Active Substance: BUPRENORPHINE
     Indication: PAIN
     Dosage: (2 X 20 MCG/HR) 40 MCG/HR, WEEKLY
     Route: 062

REACTIONS (6)
  - Product adhesion issue [Not Recovered/Not Resolved]
  - Wrong technique in product usage process [Not Recovered/Not Resolved]
  - Unevaluable event [Unknown]
  - Drug withdrawal syndrome [Unknown]
  - Overdose [Not Recovered/Not Resolved]
  - Application site pruritus [Not Recovered/Not Resolved]
